FAERS Safety Report 9570254 (Version 1)
Quarter: 2013Q3

REPORT INFORMATION
  Report Type: Spontaneous
  Country: US (occurrence: US)
  Receive Date: 20130930
  Receipt Date: 20130930
  Transmission Date: 20140515
  Serious: No
  Sender: FDA-Public Use
  Company Number: US-AMGEN-USASP2013064624

PATIENT
  Age: 43 Year
  Sex: Female
  Weight: 158.73 kg

DRUGS (6)
  1. ENBREL [Suspect]
     Indication: PRODUCT USED FOR UNKNOWN INDICATION
     Dosage: 50 MG, QWK
     Route: 058
  2. PLAQUENIL                          /00072602/ [Concomitant]
     Dosage: 200 MG, UNK
  3. NAPROXEN DELAYED RELEASE [Concomitant]
     Dosage: 375 MG, UNK
  4. PRAVASTATIN [Concomitant]
     Dosage: 20 MG, UNK
  5. METFORMIN [Concomitant]
     Dosage: 1000 MG, UNK
  6. VITAMIN D                          /00107901/ [Concomitant]
     Dosage: 2000 UNIT, UNK

REACTIONS (1)
  - Sinusitis [Unknown]
